FAERS Safety Report 9306547 (Version 3)
Quarter: 2013Q3

REPORT INFORMATION
  Report Type: Spontaneous
  Country: AT (occurrence: AT)
  Receive Date: 20130523
  Receipt Date: 20130718
  Transmission Date: 20140515
  Serious: Yes (Death, Hospitalization, Other)
  Sender: FDA-Public Use
  Company Number: AT-VERTEX PHARMACEUTICALS INC-2013-006334

PATIENT
  Sex: 0

DRUGS (3)
  1. INCIVO [Suspect]
     Indication: HEPATITIS C
     Dosage: 750 MG, TID, TABLET
     Route: 065
  2. PEGINTERFERON ALFA-2A [Suspect]
     Indication: HEPATITIS C
     Dosage: DOSAGE FORM: UNSPECIFIED
     Route: 065
  3. RIBAVIRIN [Suspect]
     Indication: HEPATITIS C
     Dosage: DOSAGE FORM: UNSPECIFIED
     Route: 065

REACTIONS (26)
  - Myocardial infarction [Unknown]
  - Acute respiratory distress syndrome [Fatal]
  - Sepsis [Fatal]
  - Enterococcal sepsis [Unknown]
  - Endocarditis [Unknown]
  - Staphylococcal abscess [Unknown]
  - Staphylococcal sepsis [Unknown]
  - Hepatocellular carcinoma [Unknown]
  - Depression [Unknown]
  - Adverse event [Unknown]
  - Pneumonia [Unknown]
  - Bronchiolitis [Unknown]
  - Urinary tract infection [Unknown]
  - Influenza [Unknown]
  - Gastroenteritis [Unknown]
  - Diverticulitis [Unknown]
  - Asthenia [Unknown]
  - Infection [Unknown]
  - Candida sepsis [Unknown]
  - Psychotic disorder [Unknown]
  - Rash [Unknown]
  - Drug reaction with eosinophilia and systemic symptoms [Unknown]
  - Anaemia [Unknown]
  - Hepatitis C [Unknown]
  - Off label use [Unknown]
  - Drug ineffective [Unknown]
